FAERS Safety Report 11272085 (Version 14)
Quarter: 2020Q2

REPORT INFORMATION
  Report Type: Report from Study
  Country: IT (occurrence: IT)
  Receive Date: 20150715
  Receipt Date: 20200626
  Transmission Date: 20200713
  Serious: Yes (Other)
  Sender: FDA-Public Use
  Company Number: PHHY2015IT026653

PATIENT
  Age: 31 Year
  Sex: Female
  Weight: 55 kg

DRUGS (2)
  1. GILENYA [Suspect]
     Active Substance: FINGOLIMOD HYDROCHLORIDE
     Dosage: UNK, QD
     Route: 048
  2. GILENYA [Suspect]
     Active Substance: FINGOLIMOD HYDROCHLORIDE
     Indication: MULTIPLE SCLEROSIS
     Dosage: 0.5 MG, QD
     Route: 048
     Dates: start: 20130314, end: 20140703

REACTIONS (12)
  - High density lipoprotein increased [Unknown]
  - Hyperbilirubinaemia [Recovered/Resolved]
  - Blood cholesterol increased [Unknown]
  - Dyslipidaemia [Unknown]
  - Hypovitaminosis [Unknown]
  - Blood iron increased [Recovered/Resolved]
  - Hepatic enzyme increased [Recovered/Resolved]
  - Blood glucose decreased [Unknown]
  - Lymphopenia [Unknown]
  - Therapy non-responder [Recovered/Resolved]
  - Drug ineffective [Unknown]
  - Lymphocytosis [Recovered/Resolved]

NARRATIVE: CASE EVENT DATE: 20130614
